FAERS Safety Report 23802201 (Version 4)
Quarter: 2024Q3

REPORT INFORMATION
  Report Type: Report from Study
  Country: US (occurrence: US)
  Receive Date: 20240501
  Receipt Date: 20240925
  Transmission Date: 20241017
  Serious: Yes (Other)
  Sender: ABBVIE
  Company Number: US-ABBVIE-5284387

PATIENT
  Sex: Female
  Weight: 70 kg

DRUGS (7)
  1. RINVOQ [Suspect]
     Active Substance: UPADACITINIB
     Indication: Rheumatoid arthritis
     Dosage: FORM STRENGTH WAS 15 MILLIGRAMS
     Route: 048
     Dates: start: 20200422
  2. RINVOQ [Suspect]
     Active Substance: UPADACITINIB
     Indication: Rheumatoid arthritis
     Route: 048
  3. RINVOQ [Suspect]
     Active Substance: UPADACITINIB
     Indication: Rheumatoid arthritis
     Route: 048
     Dates: start: 20180606
  4. ATORVASTATIN [Concomitant]
     Active Substance: ATORVASTATIN
     Indication: Product used for unknown indication
     Route: 065
  5. METOPROLOL [Concomitant]
     Active Substance: METOPROLOL
     Indication: Product used for unknown indication
     Route: 065
  6. LOSARTAN [Suspect]
     Active Substance: LOSARTAN\LOSARTAN POTASSIUM
     Indication: Product used for unknown indication
     Route: 048
     Dates: start: 202404
  7. MINERALS\VITAMINS [Suspect]
     Active Substance: MINERALS\VITAMINS
     Indication: Eye disorder
     Route: 048
     Dates: start: 20171010

REACTIONS (20)
  - Cardiac pacemaker insertion [Recovered/Resolved]
  - Joint noise [Not Recovered/Not Resolved]
  - Skin cancer [Recovered/Resolved]
  - Arthralgia [Recovered/Resolved]
  - Scratch [Recovered/Resolved]
  - Fungal infection [Recovered/Resolved]
  - Acrochordon [Recovered/Resolved]
  - Joint noise [Not Recovered/Not Resolved]
  - Musculoskeletal stiffness [Recovered/Resolved]
  - Acrochordon [Not Recovered/Not Resolved]
  - Skin papilloma [Not Recovered/Not Resolved]
  - Age-related macular degeneration [Unknown]
  - Wound infection [Not Recovered/Not Resolved]
  - Skin cancer [Recovered/Resolved]
  - Neck pain [Recovered/Resolved]
  - Arthralgia [Recovered/Resolved]
  - Fungal infection [Recovered/Resolved]
  - Acrochordon [Recovered/Resolved]
  - Joint noise [Not Recovered/Not Resolved]
  - Joint noise [Recovered/Resolved]

NARRATIVE: CASE EVENT DATE: 20190101
